FAERS Safety Report 10329177 (Version 2)
Quarter: 2014Q3

REPORT INFORMATION
  Report Type: Report from Study
  Country: CA (occurrence: CA)
  Receive Date: 20140721
  Receipt Date: 20140926
  Transmission Date: 20150326
  Serious: Yes (Life-Threatening, Other)
  Sender: FDA-Public Use
  Company Number: CA-OTSUKA-US-2014-11820

PATIENT

DRUGS (2)
  1. MELPHALAN [Suspect]
     Active Substance: MELPHALAN
     Indication: STEM CELL TRANSPLANT
     Dosage: 110 MG MILLIGRAM(S), BID
     Route: 042
     Dates: start: 20140711, end: 20140711
  2. BUSULFEX [Suspect]
     Active Substance: BUSULFAN
     Indication: STEM CELL TRANSPLANT
     Dosage: 182 MG MILLIGRAM(S), QD X3DAYS
     Route: 042
     Dates: start: 20140708, end: 20140710

REACTIONS (2)
  - Hypotension [Recovering/Resolving]
  - Sepsis [Recovered/Resolved]

NARRATIVE: CASE EVENT DATE: 20140715
